FAERS Safety Report 9187468 (Version 3)
Quarter: 2013Q2

REPORT INFORMATION
  Report Type: Spontaneous
  Country: US (occurrence: US)
  Receive Date: 20130325
  Receipt Date: 20130621
  Transmission Date: 20140414
  Serious: Yes (Death)
  Sender: FDA-Public Use
  Company Number: US-PFIZER INC-2013094411

PATIENT
  Age: 62 Year
  Sex: Male

DRUGS (9)
  1. SUTENT [Suspect]
     Indication: RENAL CANCER
     Dosage: 50 MG, UNK
     Dates: start: 20130304
  2. AMINOPHYLLINE [Concomitant]
     Dosage: UNK
  3. CALCIUM [Concomitant]
     Dosage: UNK
  4. DOCUSATE SODIUM [Concomitant]
     Dosage: UNK
  5. ENALAPRIL MALEATE [Concomitant]
     Dosage: UNK
  6. POLYETHYLENE GLYCOL [Concomitant]
     Dosage: UNK
  7. SENNOSIDES [Concomitant]
     Dosage: UNK
  8. VITAMIN B COMPLEX [Concomitant]
     Dosage: UNK
  9. MELATONIN [Concomitant]

REACTIONS (5)
  - Pneumonia aspiration [Fatal]
  - Septic shock [Fatal]
  - Cerebrovascular accident [Fatal]
  - Somnolence [Unknown]
  - Diarrhoea [Unknown]
